FAERS Safety Report 19577843 (Version 2)
Quarter: 2021Q4

REPORT INFORMATION
  Report Type: Spontaneous
  Country: US (occurrence: US)
  Receive Date: 20210719
  Receipt Date: 20211001
  Transmission Date: 20220303
  Serious: No
  Sender: FDA-Public Use
  Company Number: US-PFIZER INC-2021676701

PATIENT
  Age: 78 Year
  Sex: Female

DRUGS (3)
  1. PREMARIN [Suspect]
     Active Substance: ESTROGENS, CONJUGATED
     Indication: Hysterectomy
     Dosage: 0.625 MG
  2. ROSUVASTATIN [Concomitant]
     Active Substance: ROSUVASTATIN
     Indication: Blood cholesterol
     Dosage: 5 MG, 1X/DAY
     Route: 048
  3. LISINOPRIL [Concomitant]
     Active Substance: LISINOPRIL
     Indication: Hypertension
     Dosage: 20 MG, DAILY
     Route: 048

REACTIONS (5)
  - Off label use [Unknown]
  - Intentional product misuse [Unknown]
  - Malaise [Unknown]
  - Vulvovaginal dryness [Unknown]
  - Dysuria [Unknown]
